FAERS Safety Report 26196364 (Version 1)
Quarter: 2025Q4

REPORT INFORMATION
  Report Type: Spontaneous
  Country: US (occurrence: US)
  Receive Date: 20251224
  Receipt Date: 20251224
  Transmission Date: 20260118
  Serious: Yes (Other)
  Sender: PACIRA
  Company Number: US-ORG100016242-2025000505

PATIENT
  Age: 82 Year
  Sex: Female

DRUGS (2)
  1. BUPIVACAINE [Suspect]
     Active Substance: BUPIVACAINE
     Indication: Spinal decompression
     Dosage: NOT PROVIDED
     Route: 008
  2. ROPIVACAINE [Suspect]
     Active Substance: ROPIVACAINE
     Indication: Spinal decompression
     Dosage: NOT PROVIDED
     Route: 008

REACTIONS (5)
  - Metabolic acidosis [Recovered/Resolved]
  - Haemoglobin decreased [Unknown]
  - Local anaesthetic systemic toxicity [Recovered/Resolved]
  - Off label use [Unknown]
  - Labelled drug-drug interaction medication error [Unknown]
